FAERS Safety Report 5742970-5 (Version None)
Quarter: 2008Q2

REPORT INFORMATION
  Report Type: 
  Country: None (occurrence: None)
  Receive Date: 20080519
  Receipt Date: 20080513
  Transmission Date: 20081010
  Serious: Yes (Other)
  Sender: FDA-Public Use
  Company Number: US-ASTRAZENECA-2008UW09720

PATIENT
  Age: 14895 Day
  Sex: Male
  Weight: 81.4 kg

DRUGS (7)
  1. SEROQUEL [Suspect]
     Indication: BIPOLAR DISORDER
     Route: 048
  2. PEGASYS [Suspect]
     Indication: HEPATITIS C
     Route: 058
     Dates: start: 20070703
  3. PEGASYS [Suspect]
     Route: 058
     Dates: start: 20071031
  4. RIBAVIRIN [Suspect]
     Indication: HEPATITIS C
     Route: 048
     Dates: start: 20070703
  5. RISPERDAL [Concomitant]
  6. LAMICTAL [Concomitant]
  7. WELLBUTRIN [Concomitant]

REACTIONS (6)
  - ABSCESS [None]
  - AGGRESSION [None]
  - FATIGUE [None]
  - MYALGIA [None]
  - RASH [None]
  - STAPHYLOCOCCAL INFECTION [None]
